FAERS Safety Report 7097325-0 (Version None)
Quarter: 2010Q4

REPORT INFORMATION
  Report Type: 
  Country: None (occurrence: None)
  Receive Date: 20101111
  Receipt Date: 20100303
  Transmission Date: 20110411
  Serious: No
  Sender: FDA-Public Use
  Company Number: US-KINGPHARMUSA00001-K201000268

PATIENT
  Sex: Male
  Weight: 94.331 kg

DRUGS (13)
  1. LEVOXYL [Suspect]
     Indication: HYPOTHYROIDISM
     Dosage: 137 MCG, QD
     Dates: start: 19980101
  2. LEVOXYL [Suspect]
     Dosage: 150 MCG, QD
  3. LEVOXYL [Suspect]
     Dosage: 137 MCG, QD
  4. LEVOXYL [Suspect]
     Dosage: 150 MCG, QD 2 DAYS/WEEK; 137 MCG QD, FIVE DAYS/WEEK
  5. LEVITRA [Suspect]
     Indication: ERECTILE DYSFUNCTION
     Dosage: 10 MG, PRN
     Route: 048
     Dates: start: 20100301
  6. VIT B1,IN COMBINATION WITH VITAMIN B6 AND B12 [Concomitant]
     Indication: HYPERHOMOCYSTEINAEMIA
  7. VITAMIN B-12 [Concomitant]
     Indication: ANAEMIA
     Dosage: UNK EVERY 2 WEEKS
     Route: 058
  8. CENTRUM SILVER [Concomitant]
     Dosage: 1 DF, QD
     Route: 048
  9. VIAGRA [Concomitant]
     Indication: ERECTILE DYSFUNCTION
     Dosage: UNK
  10. MINOCYCLINE HCL [Concomitant]
     Indication: LYME DISEASE
     Dosage: 100 MG, BID
     Route: 048
  11. ASCORBIC ACID [Concomitant]
     Dosage: 1000 MG, TID
     Route: 048
  12. DEXLANSOPRAZOLE [Concomitant]
     Indication: DYSPEPSIA
     Dosage: UNK
  13. DEXLANSOPRAZOLE [Concomitant]
     Indication: GASTROOESOPHAGEAL REFLUX DISEASE

REACTIONS (5)
  - DIZZINESS [None]
  - DYSPNOEA [None]
  - INSOMNIA [None]
  - ORTHOSTATIC HYPOTENSION [None]
  - PALPITATIONS [None]
